FAERS Safety Report 9918000 (Version 2)
Quarter: 2014Q1

REPORT INFORMATION
  Report Type: Spontaneous
  Country: US (occurrence: US)
  Receive Date: 20140222
  Receipt Date: 20140222
  Transmission Date: 20141002
  Serious: Yes (Other)
  Sender: FDA-Public Use
  Company Number: US-GE HEALTHCARE MEDICAL DIAGNOSTICS-OSCN-PR-0902S-0110

PATIENT
  Age: 75 Year
  Sex: Female

DRUGS (3)
  1. OMNISCAN [Suspect]
     Indication: PARALYSIS
     Route: 042
     Dates: start: 20020606, end: 20020606
  2. OMNISCAN [Suspect]
     Indication: RENAL ARTERY STENOSIS
     Route: 042
     Dates: start: 20021109, end: 20021109
  3. OMNISCAN [Suspect]
     Indication: CEREBROVASCULAR ACCIDENT
     Route: 042
     Dates: start: 20061020, end: 20061020

REACTIONS (1)
  - Nephrogenic systemic fibrosis [Not Recovered/Not Resolved]
